FAERS Safety Report 21336278 (Version 1)
Quarter: 2022Q3

REPORT INFORMATION
  Report Type: Spontaneous
  Country: US (occurrence: None)
  Receive Date: 20220914
  Receipt Date: 20220914
  Transmission Date: 20221026
  Serious: No
  Sender: FDA-Public Use
  Company Number: None

PATIENT
  Sex: Male
  Weight: 84.37 kg

DRUGS (10)
  1. PEGASYS [Suspect]
     Active Substance: PEGINTERFERON ALFA-2A
     Indication: Essential thrombocythaemia
     Dosage: 0.25ML M(45MCG) ONCE WKLY SUB-Q?
     Route: 058
  2. CLOPIDOGREL [Concomitant]
     Active Substance: CLOPIDOGREL BISULFATE
  3. ELIQUIS [Concomitant]
     Active Substance: APIXABAN
  4. FINASTERIDE [Concomitant]
     Active Substance: FINASTERIDE
  5. FUROSEMIDE [Concomitant]
     Active Substance: FUROSEMIDE
  6. HYDROXYUREA [Concomitant]
     Active Substance: HYDROXYUREA
  7. METHYLPREDNISOLONE [Concomitant]
     Active Substance: METHYLPREDNISOLONE
  8. POTASSIUM CHLORIDE [Concomitant]
     Active Substance: POTASSIUM CHLORIDE
  9. SIMVASTATIN [Concomitant]
     Active Substance: SIMVASTATIN
  10. TAMSULOSIN [Concomitant]
     Active Substance: TAMSULOSIN

REACTIONS (1)
  - Disease progression [None]
